FAERS Safety Report 6805939-5 (Version None)
Quarter: 2010Q2

REPORT INFORMATION
  Report Type: 
  Country: None (occurrence: None)
  Receive Date: 20100629
  Receipt Date: 20080114
  Transmission Date: 20101027
  Serious: No
  Sender: FDA-Public Use
  Company Number: US-PFIZER INC-2007083212

PATIENT
  Sex: Male

DRUGS (14)
  1. VIAGRA [Suspect]
     Indication: ERECTILE DYSFUNCTION
     Dates: start: 20060307
  2. CHOLESTEROL- AND TRIGLYCERIDE REDUCERS [Suspect]
     Indication: BLOOD CHOLESTEROL INCREASED
     Dates: end: 20070101
  3. LISINOPRIL [Concomitant]
  4. NADOLOL [Concomitant]
  5. HYDROCHLOROTHIAZIDE [Concomitant]
  6. XANAX [Concomitant]
  7. FELODIPINE [Concomitant]
  8. LORTAB [Concomitant]
  9. VITAMINS [Concomitant]
  10. SLO-MAG [Concomitant]
  11. K-DUR [Concomitant]
  12. FISH OIL [Concomitant]
  13. VITAMIN E [Concomitant]
  14. BECOSYM FORTE [Concomitant]

REACTIONS (4)
  - ARTHRALGIA [None]
  - DRUG INEFFECTIVE [None]
  - FLUSHING [None]
  - MUSCLE ENZYME INCREASED [None]
